FAERS Safety Report 6631337-3 (Version None)
Quarter: 2010Q1

REPORT INFORMATION
  Report Type: 
  Country: None (occurrence: None)
  Receive Date: 20100311
  Receipt Date: 20100311
  Transmission Date: 20100710
  Serious: Yes (Hospitalization)
  Sender: FDA-Public Use
  Company Number: None

PATIENT
  Age: 64 Year
  Sex: Male
  Weight: 78.5 kg

DRUGS (2)
  1. LACTULOSE [Suspect]
     Indication: HYPERLIPIDAEMIA
     Dosage: 30 ML BID PO
     Route: 048
     Dates: start: 20080421, end: 20091001
  2. LACTULOSE [Suspect]
     Indication: HYPONATRAEMIA
     Dosage: 30 ML BID PO
     Route: 048
     Dates: start: 20080421, end: 20091001

REACTIONS (1)
  - HYPONATRAEMIA [None]
